FAERS Safety Report 26027617 (Version 1)
Quarter: 2025Q4

REPORT INFORMATION
  Report Type: Spontaneous
  Country: TW (occurrence: TW)
  Receive Date: 20251111
  Receipt Date: 20251111
  Transmission Date: 20260118
  Serious: Yes (Hospitalization, Other)
  Sender: GLAXOSMITHKLINE
  Company Number: TW-GSK-TW2025APC137132

PATIENT
  Age: 63 Year
  Sex: Female
  Weight: 70 kg

DRUGS (1)
  1. LAMICTAL [Suspect]
     Active Substance: LAMOTRIGINE
     Indication: Depression
     Dosage: 50.0 MG, QD

REACTIONS (6)
  - Stevens-Johnson syndrome [Recovering/Resolving]
  - Condition aggravated [Recovering/Resolving]
  - Lip disorder [Recovering/Resolving]
  - Bipolar disorder [Recovering/Resolving]
  - Affective disorder [Recovering/Resolving]
  - Chlamydial infection [Recovering/Resolving]

NARRATIVE: CASE EVENT DATE: 20250920
